FAERS Safety Report 20389611 (Version 1)
Quarter: 2022Q1

REPORT INFORMATION
  Report Type: Spontaneous
  Country: EG (occurrence: EG)
  Receive Date: 20220128
  Receipt Date: 20220128
  Transmission Date: 20220423
  Serious: Yes (Death, Other)
  Sender: FDA-Public Use
  Company Number: EG-NOVARTISPH-NVSC2022EG016121

PATIENT
  Age: 73 Year
  Sex: Female

DRUGS (6)
  1. AFINITOR [Suspect]
     Active Substance: EVEROLIMUS
     Indication: Breast cancer metastatic
     Dosage: 2.5 MG, QD
     Route: 048
     Dates: start: 201707, end: 201909
  2. AFINITOR [Suspect]
     Active Substance: EVEROLIMUS
     Dosage: 5 MG, QD (2 TABLET PER DAY)
     Route: 065
     Dates: start: 20211213, end: 20220113
  3. XOLAIR [Concomitant]
     Active Substance: OMALIZUMAB
     Indication: Breast cancer metastatic
     Dosage: UNKNOWN
     Route: 065
  4. FEMARA [Concomitant]
     Active Substance: LETROZOLE
     Indication: Breast cancer metastatic
     Dosage: UNK, ONE TABLET PER DAY
     Route: 065
     Dates: start: 201707
  5. FASLODEX [Concomitant]
     Active Substance: FULVESTRANT
     Indication: Breast cancer metastatic
     Dosage: UNKNOWN
     Route: 065
  6. CERTICAN [Concomitant]
     Active Substance: EVEROLIMUS
     Indication: Breast cancer metastatic
     Dosage: 2.5 MG
     Route: 065
     Dates: start: 201707, end: 201909

REACTIONS (11)
  - Death [Fatal]
  - Metastases to liver [Not Recovered/Not Resolved]
  - Metastases to bone [Not Recovered/Not Resolved]
  - Gastrointestinal haemorrhage [Not Recovered/Not Resolved]
  - Abdominal wall wound [Not Recovered/Not Resolved]
  - General physical health deterioration [Not Recovered/Not Resolved]
  - Pharyngitis [Unknown]
  - Tumour marker increased [Unknown]
  - Mouth haemorrhage [Unknown]
  - Product use in unapproved indication [Unknown]
  - Stomatitis [Unknown]

NARRATIVE: CASE EVENT DATE: 20171101
